FAERS Safety Report 5860227-9 (Version None)
Quarter: 2008Q3

REPORT INFORMATION
  Report Type: 
  Country: None (occurrence: None)
  Receive Date: 20080827
  Receipt Date: 20080825
  Transmission Date: 20090109
  Serious: Yes (Hospitalization)
  Sender: FDA-Public Use
  Company Number: US-BRISTOL-MYERS SQUIBB COMPANY-13919485

PATIENT
  Age: 64 Year
  Sex: Male
  Weight: 66 kg

DRUGS (3)
  1. CETUXIMAB [Suspect]
     Indication: HEAD AND NECK CANCER
     Dosage: THERAPY INITIATED ON 07AUG2007
     Dates: start: 20070917, end: 20070917
  2. CISPLATIN [Suspect]
     Indication: HEAD AND NECK CANCER
     Dosage: THERAPY INITIATED ON 07AUG2007
     Dates: start: 20070904, end: 20070904
  3. RADIATION THERAPY [Suspect]
     Indication: HEAD AND NECK CANCER
     Dates: start: 20070921, end: 20070921

REACTIONS (5)
  - DEHYDRATION [None]
  - DYSPHAGIA [None]
  - FEBRILE NEUTROPENIA [None]
  - ORAL PAIN [None]
  - STOMATITIS [None]
